FAERS Safety Report 19922366 (Version 1)
Quarter: 2021Q4

REPORT INFORMATION
  Report Type: Spontaneous
  Country: DE (occurrence: DE)
  Receive Date: 20211006
  Receipt Date: 20211006
  Transmission Date: 20220303
  Serious: Yes (Hospitalization)
  Sender: FDA-Public Use
  Company Number: DE-ACCORD-157384

PATIENT
  Sex: Female
  Weight: 80 kg

DRUGS (1)
  1. NEULASTA [Suspect]
     Active Substance: PEGFILGRASTIM
     Indication: Product used for unknown indication
     Dosage: STRENGTH: 6 MG, 1ST CYCLE
     Route: 065
     Dates: start: 20190904

REACTIONS (3)
  - Oral candidiasis [Recovered/Resolved]
  - Dysphagia [Recovered/Resolved]
  - General physical health deterioration [Not Recovered/Not Resolved]

NARRATIVE: CASE EVENT DATE: 20191002
